FAERS Safety Report 4314291-9 (Version None)
Quarter: 2004Q1

REPORT INFORMATION
  Report Type: 
  Country: None (occurrence: None)
  Receive Date: 20040309
  Receipt Date: 20040227
  Transmission Date: 20041129
  Serious: Yes (Hospitalization)
  Sender: FDA-Public Use
  Company Number: PHEH2004US02476

PATIENT
  Age: 80 Year
  Sex: Female

DRUGS (7)
  1. ZELNORM [Suspect]
     Indication: IRRITABLE BOWEL SYNDROME
     Dosage: 6 MG, QD
     Route: 048
     Dates: start: 20031210
  2. ZELNORM [Suspect]
     Dosage: 6 MG, BID
     Route: 048
     Dates: end: 20040225
  3. VISTARIL [Concomitant]
     Dosage: 50 MG, QHS
  4. BETIMOL [Concomitant]
     Dosage: UNK, BID
     Route: 047
  5. REFRESH [Concomitant]
     Dosage: UNK, PRN
     Route: 047
  6. LORTAB [Concomitant]
  7. DIOVAN HCT [Concomitant]
     Dosage: 80/12.5 MG
     Route: 048

REACTIONS (9)
  - ABDOMINAL ADHESIONS [None]
  - ABDOMINAL PAIN LOWER [None]
  - COLITIS ISCHAEMIC [None]
  - DIVERTICULITIS [None]
  - HAEMATOCRIT DECREASED [None]
  - HAEMOGLOBIN DECREASED [None]
  - HAEMORRHOIDS [None]
  - NAUSEA [None]
  - RECTAL HAEMORRHAGE [None]
